FAERS Safety Report 18013314 (Version 6)
Quarter: 2020Q3

REPORT INFORMATION
  Report Type: Report from Study
  Country: JP (occurrence: JP)
  Receive Date: 20200713
  Receipt Date: 20200831
  Transmission Date: 20201103
  Serious: Yes (Life-Threatening, Hospitalization, Other)
  Sender: FDA-Public Use
  Company Number: JP-BRISTOL-MYERS SQUIBB COMPANY-BMS-2020-051653

PATIENT
  Age: 52 Year
  Sex: Female
  Weight: 36 kg

DRUGS (26)
  1. PREDNISOLONE. [Suspect]
     Active Substance: PREDNISOLONE
     Dosage: 15 MILLIGRAM, QD, AFTER BREAKFAST
     Route: 048
  2. PREDNISOLONE. [Suspect]
     Active Substance: PREDNISOLONE
     Dosage: 25 MILLIGRAM, PER DAY
     Route: 065
     Dates: start: 20200801
  3. FOLIAMIN [Concomitant]
     Active Substance: FOLIC ACID
     Indication: VITAMIN SUPPLEMENTATION
     Dosage: 5 MG, QW (AFTER BREAKFAST ON FRIDAY)
     Route: 048
     Dates: start: 20200417, end: 20200619
  4. NIVOLUMAB [Suspect]
     Active Substance: NIVOLUMAB
     Indication: BREAST CANCER
     Dosage: 240 MILLIGRAM, Q2WK
     Route: 041
     Dates: start: 20181018
  5. METHOTREXATE SODIUM. [Suspect]
     Active Substance: METHOTREXATE SODIUM
     Indication: RHEUMATIC DISORDER
     Dosage: 4 MG, Q12H (ADMINISTERED ON WEDNESDAY)
     Route: 048
     Dates: start: 20200415
  6. PREDNISOLONE. [Suspect]
     Active Substance: PREDNISOLONE
     Indication: RHEUMATIC DISORDER
     Dosage: 10 MG, Q12H (AFTER BREAKFAST AND AFTER SUPPER)
     Route: 048
     Dates: start: 20200415
  7. PREDNISOLONE. [Suspect]
     Active Substance: PREDNISOLONE
     Dosage: INCREASED FROM 5 MG TO 20 MG
     Route: 048
     Dates: start: 20200609
  8. THYRADIN S [Concomitant]
     Active Substance: LEVOTHYROXINE SODIUM
     Indication: HYPOTHYROIDISM
     Dosage: 100 UG, EVERYDAY (AFTER BREAKFAST)
     Route: 048
     Dates: start: 20190418
  9. PREDNISOLONE. [Suspect]
     Active Substance: PREDNISOLONE
     Dosage: 1 MILLIGRAM/KILOGRAM
     Route: 048
     Dates: start: 20200722
  10. PREDNISOLONE. [Suspect]
     Active Substance: PREDNISOLONE
     Dosage: 30 MILLIGRAM, PER DAY
     Route: 065
     Dates: start: 20200728
  11. PREDNISOLONE. [Suspect]
     Active Substance: PREDNISOLONE
     Dosage: 20 MILLIGRAM, PER DAY
     Route: 065
     Dates: start: 20200805
  12. PREDNISOLONE. [Suspect]
     Active Substance: PREDNISOLONE
     Dosage: 30 MILLIGRAM, PER DAY
     Route: 065
     Dates: start: 20200826
  13. BEVACIZUMAB. [Concomitant]
     Active Substance: BEVACIZUMAB
     Indication: BREAST CANCER
     Dosage: UNK
     Route: 065
     Dates: start: 20181018
  14. TAKECAB [Concomitant]
     Active Substance: VONOPRAZAN FUMARATE
     Indication: ABDOMINAL PAIN UPPER
     Dosage: 20 MG, EVERYDAY (AFTER BREAKFAST)
     Route: 048
     Dates: start: 20200610
  15. HANGEKOBOKUTO [Concomitant]
     Active Substance: HERBALS
     Indication: FATIGUE
     Dosage: 2.5 G, Q8H (30 MINUTES BEFORE MEAL)
     Route: 048
     Dates: start: 20190802, end: 20200622
  16. PREDNISOLONE. [Suspect]
     Active Substance: PREDNISOLONE
     Dosage: 35 MILLIGRAM, PER DAY
     Route: 065
     Dates: start: 20200827
  17. BIOFERMIN [Concomitant]
     Active Substance: DIETARY SUPPLEMENT\PROBIOTICS
     Indication: DYSBIOSIS
     Dosage: 1 DF, Q8H (AFTER MEALS)
     Route: 048
     Dates: start: 20200428
  18. DENOTAS [Concomitant]
     Active Substance: CALCIUM CARBONATE\CHOLECALCIFEROL\MAGNESIUM CARBONATE
     Indication: MINERAL SUPPLEMENTATION
     Dosage: 2 DF, EVERYDAY (AFTER BREAKFAST)
     Route: 048
     Dates: start: 20181115
  19. HOCHUEKKITO [Concomitant]
     Active Substance: HERBALS
     Indication: FATIGUE
     Dosage: 2.5 G, Q8H (30 MINUTES BEFORE MEAL)
     Route: 048
     Dates: start: 20190802, end: 20200622
  20. REBAMIPIDE [Concomitant]
     Active Substance: REBAMIPIDE
     Indication: ABDOMINAL PAIN UPPER
     Dosage: 100 MG, Q8H (AFTER MEALS)
     Route: 048
     Dates: start: 20200622
  21. PACLITAXEL. [Concomitant]
     Active Substance: PACLITAXEL
     Indication: BREAST CANCER
     Dosage: UNK
     Route: 065
     Dates: start: 20181018
  22. RANMARK [Concomitant]
     Active Substance: DENOSUMAB
     Indication: METASTASES TO BONE
     Dosage: 120 MG, Q4W
     Route: 058
     Dates: start: 20181115
  23. HERBAL NOS [Concomitant]
     Active Substance: HERBALS
     Indication: ABDOMINAL PAIN UPPER
     Dosage: 2.5 G, Q8H (30 MINUTES BEFORE MEAL)
     Route: 048
     Dates: start: 20200622
  24. REFLEX [Concomitant]
     Active Substance: MIRTAZAPINE
     Indication: DEPRESSION
     Dosage: 15 MG, EVERYDAY (AT BEDTIME)
     Route: 048
     Dates: start: 20200603
  25. REMERON [Concomitant]
     Active Substance: MIRTAZAPINE
     Indication: DEPRESSION
     Dosage: 15 MILLIGRAM, QD
     Route: 048
     Dates: start: 20200623
  26. LOPERAMIDE HYDROCHLORIDE. [Concomitant]
     Active Substance: LOPERAMIDE HYDROCHLORIDE
     Indication: DIARRHOEA
     Dosage: 1 MG, PRN
     Route: 048
     Dates: start: 20200428

REACTIONS (4)
  - Immune thrombocytopenia [Not Recovered/Not Resolved]
  - Decreased appetite [Recovered/Resolved]
  - Small intestinal perforation [Recovered/Resolved]
  - Pyelonephritis [Recovered/Resolved]

NARRATIVE: CASE EVENT DATE: 20200415
